FAERS Safety Report 19003171 (Version 5)
Quarter: 2022Q4

REPORT INFORMATION
  Report Type: Spontaneous
  Country: US (occurrence: US)
  Receive Date: 20210312
  Receipt Date: 20221003
  Transmission Date: 20230113
  Serious: Yes (Hospitalization)
  Sender: FDA-Public Use
  Company Number: US-PFIZER INC-2020313131

PATIENT
  Age: 69 Year
  Sex: Male
  Weight: 74.84 kg

DRUGS (2)
  1. RAPAMUNE [Suspect]
     Active Substance: SIROLIMUS
     Indication: Heart transplant
     Dosage: 2 MG, DAILY (2 TABLETS BY MOUTH DAILY)
     Route: 048
  2. RAPAMUNE [Suspect]
     Active Substance: SIROLIMUS
     Indication: Immunosuppression
     Dosage: 1 MG, 1X/DAY
     Route: 048

REACTIONS (8)
  - Off label use [Unknown]
  - Drug ineffective for unapproved indication [Unknown]
  - Chills [Unknown]
  - Heart rate increased [Unknown]
  - Insomnia [Unknown]
  - Rash [Unknown]
  - Skin irritation [Unknown]
  - Laboratory test abnormal [Unknown]
